FAERS Safety Report 6754635-1 (Version None)
Quarter: 2010Q2

REPORT INFORMATION
  Report Type: 
  Country: None (occurrence: None)
  Receive Date: 20100603
  Receipt Date: 20100519
  Transmission Date: 20101027
  Serious: Yes (Hospitalization)
  Sender: FDA-Public Use
  Company Number: KP-SHIRE-SPV1-2010-00975

PATIENT

DRUGS (3)
  1. AGRYLIN [Suspect]
     Indication: THROMBOCYTOSIS
  2. FUROSEMIDE [Concomitant]
  3. SPIRONOLACTONE [Concomitant]

REACTIONS (2)
  - HYPERKALAEMIA [None]
  - PERICARDIAL EFFUSION [None]
